FAERS Safety Report 4578361-2 (Version None)
Quarter: 2005Q1

REPORT INFORMATION
  Report Type: 
  Country: None (occurrence: None)
  Receive Date: 20050202
  Receipt Date: 20050202
  Transmission Date: 20050727
  Serious: Yes (Hospitalization)
  Sender: FDA-Public Use
  Company Number: None

PATIENT
  Age: 75 Year
  Sex: Male

DRUGS (5)
  1. ROFECOXIB [Suspect]
     Dosage: 25 MG PO DAILY
     Route: 048
  2. LISINOPRIL [Concomitant]
  3. ATENOLOL [Concomitant]
  4. SERTRALINE [Concomitant]
  5. FLOMAX [Concomitant]

REACTIONS (2)
  - BLOOD CREATININE INCREASED [None]
  - DISEASE PROGRESSION [None]
